FAERS Safety Report 18783967 (Version 1)
Quarter: 2021Q1

REPORT INFORMATION
  Report Type: Report from Study
  Country: US (occurrence: US)
  Receive Date: 20210125
  Receipt Date: 20210125
  Transmission Date: 20210419
  Serious: Yes (Death, Life-Threatening)
  Sender: FDA-Public Use
  Company Number: US-SHIRE-US202023161

PATIENT
  Sex: Female
  Weight: 69 kg

DRUGS (3)
  1. PARATHYROID HORMONE [Suspect]
     Active Substance: PARATHYROID HORMONE
     Indication: HYPOPARATHYROIDISM
     Dosage: STUDY DRUG NOT ADMINISTERED
     Route: 065
  2. PARATHYROID HORMONE [Suspect]
     Active Substance: PARATHYROID HORMONE
     Indication: HYPOPARATHYROIDISM
     Dosage: STUDY DRUG NOT ADMINISTERED
     Route: 065
  3. PARATHYROID HORMONE [Suspect]
     Active Substance: PARATHYROID HORMONE
     Indication: HYPOPARATHYROIDISM
     Dosage: STUDY DRUG NOT ADMINISTERED
     Route: 065

REACTIONS (3)
  - Medullary thyroid cancer [Fatal]
  - Metastases to bone [Fatal]
  - Condition aggravated [Fatal]

NARRATIVE: CASE EVENT DATE: 201906
